FAERS Safety Report 7651525-7 (Version None)
Quarter: 2011Q3

REPORT INFORMATION
  Report Type: 
  Country: None (occurrence: None)
  Receive Date: 20110802
  Receipt Date: 20110728
  Transmission Date: 20111222
  Serious: Yes (Hospitalization)
  Sender: FDA-Public Use
  Company Number: PHHO2011BE12422

PATIENT
  Sex: Male
  Weight: 43 kg

DRUGS (2)
  1. PROGRAF [Suspect]
     Indication: IMMUNOSUPPRESSION
     Dosage: 1 MG, UNK
     Dates: start: 20100912
  2. MYCOPHENOLIC ACID [Suspect]
     Indication: RENAL TRANSPLANT
     Dosage: DOUBLE BLINDED
     Dates: start: 20100913, end: 20110719

REACTIONS (2)
  - DIARRHOEA [None]
  - ACUTE PRERENAL FAILURE [None]
